FAERS Safety Report 5614046-9 (Version None)
Quarter: 2008Q1

REPORT INFORMATION
  Report Type: 
  Country: None (occurrence: None)
  Receive Date: 20080205
  Receipt Date: 20080123
  Transmission Date: 20080703
  Serious: Yes (Other)
  Sender: FDA-Public Use
  Company Number: SK-ROCHE-542861

PATIENT
  Age: 22 Year
  Sex: Female

DRUGS (5)
  1. ROACCUTANE [Suspect]
     Indication: ACNE
     Route: 065
     Dates: start: 20060307, end: 20070601
  2. ROACCUTANE [Suspect]
     Dosage: FORM: TABLET.
     Route: 065
  3. ERYFLUID [Concomitant]
     Indication: ACNE
  4. REGULON [Concomitant]
     Indication: CONTRACEPTION
  5. 1 CONCOMITANT DRUG [Concomitant]
     Indication: ACNE
     Dosage: DRUG NAME: SCINOREN.

REACTIONS (2)
  - NO ADVERSE EVENT [None]
  - PREGNANCY [None]
